FAERS Safety Report 7938153-0 (Version None)
Quarter: 2011Q4

REPORT INFORMATION
  Report Type: 
  Country: None (occurrence: None)
  Receive Date: 20111123
  Receipt Date: 20111021
  Transmission Date: 20120403
  Serious: No
  Sender: FDA-Public Use
  Company Number: US-BRISTOL-MYERS SQUIBB COMPANY-16184400

PATIENT
  Age: 58 Year
  Sex: Male

DRUGS (3)
  1. ONGLYZA [Suspect]
     Route: 048
     Dates: start: 20110623, end: 20110823
  2. ASPIRIN [Concomitant]
  3. VITAMIN D [Concomitant]

REACTIONS (1)
  - NIGHTMARE [None]
